FAERS Safety Report 9753657 (Version 1)
Quarter: 2013Q4

REPORT INFORMATION
  Report Type: Spontaneous
  Country: US (occurrence: US)
  Receive Date: 20131213
  Receipt Date: 20131213
  Transmission Date: 20140711
  Serious: Yes (Other)
  Sender: FDA-Public Use
  Company Number: US-ABBVIE-13P-163-1176165-00

PATIENT
  Sex: Female

DRUGS (2)
  1. LUPRON [Suspect]
     Indication: PRODUCT USED FOR UNKNOWN INDICATION
     Dates: start: 200702
  2. PROGESTERONE [Suspect]
     Indication: PRODUCT USED FOR UNKNOWN INDICATION
     Dosage: ^GIVE BACK^ IN COMBINATION WITH LUPRON

REACTIONS (2)
  - Hysterectomy [Unknown]
  - Blood cholesterol increased [Unknown]
